FAERS Safety Report 16594584 (Version 1)
Quarter: 2019Q3

REPORT INFORMATION
  Report Type: Spontaneous
  Country: US (occurrence: US)
  Receive Date: 20190718
  Receipt Date: 20190718
  Transmission Date: 20191004
  Serious: No
  Sender: FDA-Public Use
  Company Number: US-MYLANLABS-2019M1065894

PATIENT
  Sex: Female
  Weight: 82 kg

DRUGS (1)
  1. EPIPEN [Suspect]
     Active Substance: EPINEPHRINE
     Indication: PRODUCT USED FOR UNKNOWN INDICATION
     Dosage: UNK
     Route: 058

REACTIONS (6)
  - Skin discolouration [Recovered/Resolved]
  - Injection site pain [Recovering/Resolving]
  - Hypoaesthesia [Recovered/Resolved]
  - Expired product administered [Unknown]
  - Injection site bruising [Recovered/Resolved]
  - Accidental exposure to product [Unknown]
